FAERS Safety Report 9168914 (Version 2)
Quarter: 2013Q2

REPORT INFORMATION
  Report Type: Spontaneous
  Country: PT (occurrence: None)
  Receive Date: 20130307
  Receipt Date: 20130408
  Transmission Date: 20140414
  Serious: Yes (Disabling)
  Sender: FDA-Public Use
  Company Number: SYM-2013-01299

PATIENT
  Age: 30 Year
  Sex: Female

DRUGS (2)
  1. FLAGYL [Suspect]
     Indication: VAGINAL INFECTION
     Route: 048
     Dates: start: 20130204, end: 20130204
  2. ORAL CONTRACEPTIVE NOS (ORAL CONTRACEPTIVE NOS) (ORAL CONTRACEPTIVE NOS) [Concomitant]

REACTIONS (3)
  - Nausea [None]
  - Vomiting [None]
  - Chromaturia [None]
